FAERS Safety Report 19913144 (Version 1)
Quarter: 2021Q4

REPORT INFORMATION
  Report Type: Spontaneous
  Country: ES (occurrence: ES)
  Receive Date: 20211004
  Receipt Date: 20211004
  Transmission Date: 20220303
  Serious: Yes (Other)
  Sender: FDA-Public Use
  Company Number: ES-ARISTO PHARMA IBERIA S.L.-2021006725

PATIENT
  Age: 73 Year
  Sex: Female

DRUGS (2)
  1. ACYCLOVIR [Suspect]
     Active Substance: ACYCLOVIR
     Indication: Varicella
     Dosage: 200 MILLIGRAM, BID
  2. ACYCLOVIR [Suspect]
     Active Substance: ACYCLOVIR
     Dosage: 200 MILLIGRAM, QD

REACTIONS (2)
  - Toxicity to various agents [Recovered/Resolved]
  - Encephalitis [Recovered/Resolved]
